FAERS Safety Report 5088359-6 (Version None)
Quarter: 2006Q3

REPORT INFORMATION
  Report Type: 
  Country: None (occurrence: None)
  Receive Date: 20060822
  Receipt Date: 20060817
  Transmission Date: 20061208
  Serious: Yes (Hospitalization)
  Sender: FDA-Public Use
  Company Number: E2020-00217-SPO-FR

PATIENT
  Age: 81 Year
  Sex: Female

DRUGS (10)
  1. ARICEPT [Suspect]
     Indication: DEMENTIA ALZHEIMER'S TYPE
     Dosage: 10 MG, 1 IN 1 D, ORAL
     Route: 048
     Dates: start: 20050601, end: 20060601
  2. RISPERDAL [Suspect]
     Indication: DEMENTIA ALZHEIMER'S TYPE
     Dosage: ORAL
     Route: 048
     Dates: start: 20050601, end: 20060601
  3. HYPERIUM (RILMENIDINE) [Suspect]
     Indication: HYPERTENSION
     Dosage: 1 MG, UNKNOWN, ORAL
     Route: 048
     Dates: start: 20050601
  4. ISOPTINLP (VERAPAMIL HYDROCHLORIDE) [Suspect]
     Indication: HYPERTENSION
     Dosage: 240 MG, UNKNOWN, ORAL
     Route: 048
     Dates: start: 20050501
  5. EQUANIL [Suspect]
     Indication: DEMENTIA ALZHEIMER'S TYPE
     Dosage: 1.2 GM, UNKNOWN, ORAL
     Route: 048
     Dates: start: 20050601, end: 20060601
  6. LEVOTHYROXINE SODIUM [Concomitant]
  7. DIGOXIN [Concomitant]
  8. LOSARTAN (LOSARTAN POTASSIUM) [Concomitant]
  9. PRAZEPAM [Concomitant]
  10. TRIHEXIPHENIDYL (TRIHEXYPHENIDYL HYDROCHLORIDE) [Concomitant]

REACTIONS (8)
  - AGITATION [None]
  - ANXIETY [None]
  - CONFUSIONAL STATE [None]
  - DRUG INTERACTION [None]
  - HYPONATRAEMIA [None]
  - MENTAL DISORDER [None]
  - RESTLESSNESS [None]
  - WATER INTOXICATION [None]
